FAERS Safety Report 5958084-5 (Version None)
Quarter: 2008Q4

REPORT INFORMATION
  Report Type: 
  Country: None (occurrence: None)
  Receive Date: 20081119
  Receipt Date: 20081112
  Transmission Date: 20090506
  Serious: Yes (Hospitalization)
  Sender: FDA-Public Use
  Company Number: B0544856A

PATIENT
  Sex: Female
  Weight: 69.3 kg

DRUGS (4)
  1. PIRITEZE ALLERGY TABLETS [Suspect]
     Indication: DRUG USE FOR UNKNOWN INDICATION
     Route: 065
  2. ZANTAC [Suspect]
     Indication: DRUG USE FOR UNKNOWN INDICATION
     Route: 065
  3. CHLORPHENIRAMINE [Concomitant]
     Dosage: 4MG THREE TIMES PER DAY
     Dates: start: 20080929
  4. ALBUTEROL SULFATE [Concomitant]
     Dosage: 2PUFF FOUR TIMES PER DAY

REACTIONS (6)
  - ALANINE AMINOTRANSFERASE INCREASED [None]
  - BILIARY COLIC [None]
  - CHOLELITHIASIS [None]
  - GASTROINTESTINAL DISORDER [None]
  - HYPERSENSITIVITY [None]
  - URTICARIA [None]
